FAERS Safety Report 5212882-4 (Version None)
Quarter: 2007Q1

REPORT INFORMATION
  Report Type: 
  Country: None (occurrence: None)
  Receive Date: 20070119
  Receipt Date: 20070110
  Transmission Date: 20070707
  Serious: Yes (Hospitalization)
  Sender: FDA-Public Use
  Company Number: PHHO2007IT00577

PATIENT
  Age: 30 Year
  Sex: Female

DRUGS (8)
  1. RAD [Suspect]
     Indication: HEART TRANSPLANT
     Dosage: 2.25 MG DAILY
     Route: 048
  2. RAD [Suspect]
     Dosage: 3 MG DAILY
     Route: 048
     Dates: start: 20061208
  3. AMIKACIN [Suspect]
     Dosage: 100 MG
     Route: 042
     Dates: start: 20061224, end: 20061227
  4. AMIKACIN [Suspect]
     Dosage: 100 MG
     Route: 042
     Dates: start: 20061229, end: 20061229
  5. GLAZIDIM [Concomitant]
     Dates: start: 20061224, end: 20061231
  6. TARGOSID [Concomitant]
     Dosage: 240 MG
     Route: 042
     Dates: start: 20061224, end: 20061231
  7. NEORAL [Suspect]
     Indication: HEART TRANSPLANT
     Dosage: 175 MG DAILY DOSE
     Route: 048
     Dates: start: 20000102
  8. VANCOMYCIN [Concomitant]
     Dosage: ALTERNATE DAYS
     Dates: end: 20070102

REACTIONS (5)
  - ASCITES [None]
  - BLOOD CREATININE INCREASED [None]
  - DRUG TOXICITY [None]
  - PARACENTESIS ABDOMEN [None]
  - RENAL FAILURE ACUTE [None]
